FAERS Safety Report 5129480-3 (Version None)
Quarter: 2006Q4

REPORT INFORMATION
  Report Type: 
  Country: None (occurrence: None)
  Receive Date: 20061012
  Receipt Date: 20060929
  Transmission Date: 20070319
  Serious: Yes (Other)
  Sender: FDA-Public Use
  Company Number: 2006118220

PATIENT
  Age: 61 Year
  Sex: Female

DRUGS (9)
  1. ZITHROMAX [Suspect]
     Dosage: ORAL
     Route: 048
     Dates: end: 20060821
  2. PEG-INTRON [Suspect]
     Indication: HEPATITIS C
     Dosage: 150 MCG (1 IN 1 WK), SUBCUTANEOUS
     Route: 058
     Dates: start: 20060627
  3. RIBAVIRIN [Suspect]
     Indication: HEPATITIS C
     Dosage: 1200 MG (1 IN 1 D), ORAL
     Route: 048
     Dates: start: 20060627
  4. ISOSORBIDE MONONITRATE [Concomitant]
  5. LIPITOR [Concomitant]
  6. LISINOPRIL [Concomitant]
  7. NORTRIPTYLINE HCL [Concomitant]
  8. VITAMIN B12 [Concomitant]
  9. PLAVIX [Concomitant]

REACTIONS (10)
  - ANXIETY [None]
  - ASTHMA [None]
  - CHILLS [None]
  - CONDITION AGGRAVATED [None]
  - DEPRESSION [None]
  - DRUG HYPERSENSITIVITY [None]
  - GINGIVAL BLEEDING [None]
  - INSOMNIA [None]
  - RECTAL HAEMORRHAGE [None]
  - SLEEP DISORDER [None]
